FAERS Safety Report 7085317-7 (Version None)
Quarter: 2010Q4

REPORT INFORMATION
  Report Type: 
  Country: None (occurrence: None)
  Receive Date: 20101105
  Receipt Date: 20101028
  Transmission Date: 20110411
  Serious: Yes (Other)
  Sender: FDA-Public Use
  Company Number: FR-PFIZER INC-2010139725

PATIENT
  Age: 33 Year
  Sex: Female
  Weight: 75 kg

DRUGS (3)
  1. ZOLOFT [Suspect]
     Indication: ANXIETY
     Dosage: 50 MG, 1X/DAY
     Dates: start: 20090105
  2. LEVOTHYROXINE SODIUM [Concomitant]
     Indication: HYPOTHYROIDISM
     Dosage: 100 MG, 1X/DAY
     Dates: start: 19930101
  3. LEXOMIL [Concomitant]
     Indication: ANXIETY
     Dosage: 6 MG, 1X/DAY
     Dates: start: 19930101

REACTIONS (1)
  - INTRA-UTERINE DEATH [None]
